FAERS Safety Report 16222565 (Version 1)
Quarter: 2019Q2

REPORT INFORMATION
  Report Type: Spontaneous
  Country: US (occurrence: US)
  Receive Date: 20190316
  Receipt Date: 20190316
  Transmission Date: 20190711
  Serious: Yes (Death)
  Sender: FDA-Public Use
  Company Number: None

PATIENT
  Age: 70 Year
  Sex: Female
  Weight: 87 kg

DRUGS (1)
  1. NOLVADEX [Suspect]
     Active Substance: TAMOXIFEN CITRATE
     Dosage: ?          OTHER DOSE:2.8 G;?
     Dates: end: 20161125

REACTIONS (4)
  - Type 2 diabetes mellitus [None]
  - Cardiac arrest [None]
  - Coronary artery disease [None]
  - Cardiac failure congestive [None]

NARRATIVE: CASE EVENT DATE: 20190224
